FAERS Safety Report 6127835-1 (Version None)
Quarter: 2009Q1

REPORT INFORMATION
  Report Type: 
  Country: None (occurrence: None)
  Receive Date: 20090320
  Receipt Date: 20090320
  Transmission Date: 20090719
  Serious: Yes (Disabling)
  Sender: FDA-Public Use
  Company Number: None

PATIENT
  Sex: Female
  Weight: 53.0709 kg

DRUGS (2)
  1. GEODON [Suspect]
     Indication: ANXIETY
     Dosage: 2 AT BEDTIME
     Dates: start: 20040101, end: 20070101
  2. GEODON [Suspect]
     Indication: DEPRESSION
     Dosage: 2 AT BEDTIME
     Dates: start: 20040101, end: 20070101

REACTIONS (3)
  - COLON CANCER [None]
  - DYSTONIA [None]
  - HEPATIC NEOPLASM MALIGNANT [None]
